FAERS Safety Report 9782338 (Version 2)
Quarter: 2014Q1

REPORT INFORMATION
  Report Type: Spontaneous
  Country: US (occurrence: US)
  Receive Date: 20131226
  Receipt Date: 20140131
  Transmission Date: 20141002
  Serious: No
  Sender: FDA-Public Use
  Company Number: US-TEVA-451942USA

PATIENT
  Age: 44 Year
  Sex: Female
  Weight: 75.36 kg

DRUGS (5)
  1. PARAGARD 380A [Suspect]
     Indication: VAGINAL HAEMORRHAGE
     Route: 015
     Dates: start: 20131107, end: 20131209
  2. ALLERGY MEDICATION [Concomitant]
     Indication: HYPERSENSITIVITY
  3. WOMEN^S MULTIVITAMIN [Concomitant]
     Indication: SUPPLEMENTATION THERAPY
  4. ESCITALOPRAM [Concomitant]
     Indication: PRODUCT USED FOR UNKNOWN INDICATION
     Dosage: 20 MILLIGRAM DAILY;
  5. FLUTICASONE PROP [Concomitant]
     Indication: MULTIPLE ALLERGIES
     Dosage: SPRAY

REACTIONS (3)
  - Vaginal haemorrhage [Recovered/Resolved]
  - Muscle spasms [Not Recovered/Not Resolved]
  - Ovarian disorder [Not Recovered/Not Resolved]
